FAERS Safety Report 13744820 (Version 1)
Quarter: 2017Q3

REPORT INFORMATION
  Report Type: Spontaneous
  Country: US (occurrence: US)
  Receive Date: 20170711
  Receipt Date: 20170711
  Transmission Date: 20171127
  Serious: Yes (Other)
  Sender: FDA-Public Use
  Company Number: None

PATIENT
  Age: 27 Year
  Sex: Female
  Weight: 56.07 kg

DRUGS (1)
  1. BUP/NALOXONE TABLETS [Suspect]
     Active Substance: BUPRENORPHINE\NALOXONE
     Indication: DRUG DEPENDENCE
     Route: 060
     Dates: start: 20170307, end: 20170321

REACTIONS (4)
  - Oral discomfort [None]
  - Nausea [None]
  - Oral mucosal blistering [None]
  - Drug intolerance [None]

NARRATIVE: CASE EVENT DATE: 20170321
